FAERS Safety Report 26117780 (Version 1)
Quarter: 2025Q4

REPORT INFORMATION
  Report Type: Spontaneous
  Country: US (occurrence: None)
  Receive Date: 20251203
  Receipt Date: 20251203
  Transmission Date: 20260117
  Serious: No
  Sender: APOTEX
  Company Number: US-APOTEX-2025AP033259

PATIENT
  Age: 66 Year
  Sex: Female

DRUGS (1)
  1. TERIPARATIDE [Suspect]
     Active Substance: TERIPARATIDE
     Indication: Osteoporosis postmenopausal
     Dosage: 20 MICROGRAM, QD
     Dates: start: 202008

REACTIONS (1)
  - Injection site haemorrhage [Unknown]
